FAERS Safety Report 7571447-X (Version None)
Quarter: 2011Q2

REPORT INFORMATION
  Report Type: 
  Country: None (occurrence: None)
  Receive Date: 20110624
  Receipt Date: 20110610
  Transmission Date: 20111010
  Serious: Yes (Other)
  Sender: FDA-Public Use
  Company Number: PHHY2011GB51810

PATIENT
  Age: 52 Year
  Sex: Male

DRUGS (3)
  1. MYCOPHENOLATE MEFETIL [Suspect]
     Indication: RENAL TRANSPLANT
     Dosage: 2 G, DAILY
     Dates: start: 20000401
  2. CYCLOSPORINE [Suspect]
     Indication: RENAL TRANSPLANT
     Dosage: UNK
  3. PREDNISOLONE [Suspect]

REACTIONS (2)
  - HYPOGAMMAGLOBULINAEMIA [None]
  - BRONCHIECTASIS [None]
